FAERS Safety Report 13029960 (Version 2)
Quarter: 2017Q1

REPORT INFORMATION
  Report Type: Spontaneous
  Country: JP (occurrence: JP)
  Receive Date: 20161215
  Receipt Date: 20170224
  Transmission Date: 20170428
  Serious: Yes (Death, Disabling)
  Sender: FDA-Public Use
  Company Number: JP-AMGEN-JPNSP2016177462

PATIENT
  Age: 75 Year
  Sex: Female
  Weight: 36 kg

DRUGS (15)
  1. ENDOXAN [Concomitant]
     Active Substance: CYCLOPHOSPHAMIDE
     Indication: METASTASES TO BONE
     Dosage: 625 MG, 7TIME
     Route: 042
     Dates: start: 20150315, end: 20150823
  2. RANMARK [Suspect]
     Active Substance: DENOSUMAB
     Indication: METASTASES TO BONE
     Dosage: 120 MG, 6TIME
     Route: 058
     Dates: start: 20151026, end: 20160415
  3. ZOLEDRONIC ACID [Suspect]
     Active Substance: ZOLEDRONIC ACID
     Indication: METASTASES TO BONE
     Dosage: 4 MG, 10TIME
     Route: 042
     Dates: start: 20140912, end: 20150923
  4. 5-FU [Concomitant]
     Active Substance: FLUOROURACIL
     Indication: METASTASES TO BONE
     Dosage: 625 MG, 7TIME
     Route: 042
     Dates: start: 20150315, end: 20150823
  5. FEMARA [Concomitant]
     Active Substance: LETROZOLE
     Indication: METASTASES TO BONE
     Dosage: 2.5 MG, UNK
     Route: 048
     Dates: start: 20140324
  6. CALCIUM L-ASPARTATE [Concomitant]
     Indication: METASTASES TO BONE
     Dosage: 400 MG, UNK
     Route: 048
     Dates: start: 20140324
  7. ABRAXANE [Concomitant]
     Active Substance: PACLITAXEL
     Indication: BREAST CANCER
  8. ENDOXAN [Concomitant]
     Active Substance: CYCLOPHOSPHAMIDE
     Indication: BREAST CANCER
  9. FEMARA [Concomitant]
     Active Substance: LETROZOLE
     Indication: BREAST CANCER
  10. AVASTIN [Concomitant]
     Active Substance: BEVACIZUMAB
     Indication: METASTASES TO BONE
     Dosage: 370 MG, 24TIME
     Route: 042
     Dates: start: 20140328, end: 20160802
  11. ABRAXANE [Concomitant]
     Active Substance: PACLITAXEL
     Indication: METASTASES TO BONE
     Dosage: 250 MG, 11TIME
     Route: 042
     Dates: start: 20140408
  12. ADRIACIN [Concomitant]
     Active Substance: DOXORUBICIN HYDROCHLORIDE
     Indication: BREAST CANCER
  13. ADRIACIN [Concomitant]
     Active Substance: DOXORUBICIN HYDROCHLORIDE
     Indication: METASTASES TO BONE
     Dosage: 60 MG, 6TIME
     Route: 042
     Dates: start: 20150410, end: 20150724
  14. AVASTIN [Concomitant]
     Active Substance: BEVACIZUMAB
     Indication: BREAST CANCER
  15. 5-FU [Concomitant]
     Active Substance: FLUOROURACIL
     Indication: BREAST CANCER

REACTIONS (3)
  - Extradural abscess [Fatal]
  - Subcutaneous abscess [Not Recovered/Not Resolved]
  - Osteonecrosis of jaw [Not Recovered/Not Resolved]

NARRATIVE: CASE EVENT DATE: 20150611
